FAERS Safety Report 4976597-X (Version None)
Quarter: 2006Q2

REPORT INFORMATION
  Report Type: 
  Country: None (occurrence: None)
  Receive Date: 20060419
  Receipt Date: 20050718
  Transmission Date: 20061013
  Serious: Yes (Hospitalization, Disabling)
  Sender: FDA-Public Use
  Company Number: US-MERCK-0507USA03056

PATIENT
  Age: 55 Year
  Sex: Male
  Weight: 64 kg

DRUGS (6)
  1. VIOXX [Suspect]
     Indication: ARTHRALGIA
     Route: 048
  2. VIOXX [Suspect]
     Route: 048
  3. VIOXX [Suspect]
     Indication: OSTEOARTHRITIS
     Route: 048
  4. VIOXX [Suspect]
     Route: 048
  5. TYLENOL (CAPLET) [Concomitant]
     Route: 065
  6. HUMULIN 70/30 [Concomitant]
     Route: 065

REACTIONS (8)
  - ACTIVITIES OF DAILY LIVING IMPAIRED [None]
  - ARTHRALGIA [None]
  - CEREBRAL INFARCTION [None]
  - CEREBROVASCULAR ACCIDENT [None]
  - DIABETES MELLITUS [None]
  - DYSLIPIDAEMIA [None]
  - HYPERCHOLESTEROLAEMIA [None]
  - OVERDOSE [None]
